FAERS Safety Report 9498846 (Version 3)
Quarter: 2013Q4

REPORT INFORMATION
  Report Type: Spontaneous
  Country: AR (occurrence: AR)
  Receive Date: 20130904
  Receipt Date: 20131206
  Transmission Date: 20140711
  Serious: Yes (Other)
  Sender: FDA-Public Use
  Company Number: AR-AMGEN-ARGSP2013061535

PATIENT
  Age: 73 Year
  Sex: Female

DRUGS (1)
  1. ENBREL [Suspect]
     Indication: RHEUMATOID ARTHRITIS
     Dosage: 50 MG, WEEKLY
     Route: 065
     Dates: start: 20020715

REACTIONS (5)
  - Arthralgia [Recovered/Resolved]
  - Arthritis [Recovered/Resolved]
  - Arthropathy [Recovering/Resolving]
  - Drug ineffective [Not Recovered/Not Resolved]
  - Device related infection [Recovered/Resolved]
